FAERS Safety Report 14568404 (Version 1)
Quarter: 2018Q1

REPORT INFORMATION
  Report Type: Spontaneous
  Country: US (occurrence: US)
  Receive Date: 20180223
  Receipt Date: 20180223
  Transmission Date: 20180509
  Serious: Yes (Other)
  Sender: FDA-Public Use
  Company Number: US-TEVA-2018-US-862271

PATIENT
  Age: 17 Year

DRUGS (1)
  1. CLARAVIS [Suspect]
     Active Substance: ISOTRETINOIN
     Route: 065

REACTIONS (5)
  - Cheilitis [Recovered/Resolved]
  - Epistaxis [Recovered/Resolved]
  - Urinary retention [Recovered/Resolved]
  - Lip exfoliation [Unknown]
  - Lip blister [Recovered/Resolved]

NARRATIVE: CASE EVENT DATE: 20171206
